FAERS Safety Report 24352698 (Version 2)
Quarter: 2025Q2

REPORT INFORMATION
  Report Type: Report from Study
  Country: US (occurrence: US)
  Receive Date: 20240923
  Receipt Date: 20250607
  Transmission Date: 20250717
  Serious: No
  Sender: STEMLINE THERAPEUTICS
  Company Number: US-Stemline Therapeutics, Inc.-2024ST001227

PATIENT

DRUGS (4)
  1. ORSERDU [Suspect]
     Active Substance: ELACESTRANT
     Indication: Breast cancer female
     Dosage: 345 MG, DAILY
     Route: 048
     Dates: start: 20240201
  2. ORSERDU [Suspect]
     Active Substance: ELACESTRANT
  3. ORSERDU [Suspect]
     Active Substance: ELACESTRANT
     Dosage: 345 MG, DAILY
     Route: 048
     Dates: start: 20240201
  4. ORSERDU [Suspect]
     Active Substance: ELACESTRANT
     Dosage: 345 MG, DAILY
     Route: 048
     Dates: start: 20240201

REACTIONS (7)
  - Malaise [Unknown]
  - Acne [Recovered/Resolved]
  - Tumour marker decreased [Recovering/Resolving]
  - Diarrhoea [Unknown]
  - Rash [Recovered/Resolved]
  - Fatigue [Unknown]
  - Blood cholesterol increased [Unknown]

NARRATIVE: CASE EVENT DATE: 20240626
